FAERS Safety Report 12947643 (Version 1)
Quarter: 2016Q4

REPORT INFORMATION
  Report Type: Other
  Country: DE (occurrence: DE)
  Receive Date: 20161116
  Receipt Date: 20161116
  Transmission Date: 20170207
  Serious: Yes (Other)
  Sender: FDA-Public Use
  Company Number: DE-ASTELLAS-2016US044792

PATIENT
  Age: 63 Year
  Sex: Female
  Weight: 65 kg

DRUGS (2)
  1. VESIKUR [Suspect]
     Active Substance: SOLIFENACIN SUCCINATE
     Indication: URGE INCONTINENCE
     Route: 048
     Dates: start: 20150526, end: 20151217
  2. VESIKUR [Suspect]
     Active Substance: SOLIFENACIN SUCCINATE
     Route: 048
     Dates: start: 20151218, end: 20160128

REACTIONS (6)
  - Eye inflammation [Recovered/Resolved]
  - Gastritis [Recovered/Resolved]
  - Dysphagia [Recovered/Resolved]
  - Laryngeal stenosis [Recovered/Resolved]
  - Retinal detachment [Recovered/Resolved with Sequelae]
  - Vitreous disorder [Unknown]

NARRATIVE: CASE EVENT DATE: 201601
